FAERS Safety Report 5296621-7 (Version None)
Quarter: 2007Q2

REPORT INFORMATION
  Report Type: 
  Country: None (occurrence: None)
  Receive Date: 20070413
  Receipt Date: 20070403
  Transmission Date: 20071010
  Serious: Yes (Other)
  Sender: FDA-Public Use
  Company Number: FR-PFIZER INC-2007005655

PATIENT
  Sex: Female
  Weight: 76.5 kg

DRUGS (2)
  1. TAHOR [Suspect]
  2. BROMAZEPAM [Concomitant]
     Route: 048

REACTIONS (7)
  - ACCIDENT [None]
  - ARTHRALGIA [None]
  - BONE DISORDER [None]
  - COMPLEX REGIONAL PAIN SYNDROME [None]
  - FALL [None]
  - HAND FRACTURE [None]
  - LOWER LIMB FRACTURE [None]
